FAERS Safety Report 14388029 (Version 1)
Quarter: 2018Q1

REPORT INFORMATION
  Report Type: Spontaneous
  Country: US (occurrence: US)
  Receive Date: 20180115
  Receipt Date: 20180115
  Transmission Date: 20180509
  Serious: Yes (Other)
  Sender: FDA-Public Use
  Company Number: US-SA-2017SA206633

PATIENT
  Age: 58 Year
  Sex: Female
  Weight: 111.3 kg

DRUGS (9)
  1. LANTUS [Concomitant]
     Active Substance: INSULIN GLARGINE
  2. TAXOTERE [Suspect]
     Active Substance: DOCETAXEL
     Indication: BREAST CANCER
     Route: 051
     Dates: start: 20150611, end: 20150611
  3. NOVOLOG [Concomitant]
     Active Substance: INSULIN ASPART
  4. MOTRIN [Concomitant]
     Active Substance: IBUPROFEN
  5. LASIX [Concomitant]
     Active Substance: FUROSEMIDE
  6. TAXOTERE [Suspect]
     Active Substance: DOCETAXEL
     Indication: BREAST CANCER
     Route: 051
     Dates: start: 20150910, end: 20150910
  7. LISINOPRIL. [Concomitant]
     Active Substance: LISINOPRIL
  8. CARBOPLATIN. [Concomitant]
     Active Substance: CARBOPLATIN
  9. AMLODIPINE [Concomitant]
     Active Substance: AMLODIPINE BESYLATE

REACTIONS (2)
  - Psychological trauma [Unknown]
  - Alopecia [Not Recovered/Not Resolved]

NARRATIVE: CASE EVENT DATE: 201509
